FAERS Safety Report 15742628 (Version 1)
Quarter: 2018Q4

REPORT INFORMATION
  Report Type: Spontaneous
  Country: US (occurrence: US)
  Receive Date: 20181219
  Receipt Date: 20181219
  Transmission Date: 20190205
  Serious: No
  Sender: FDA-Public Use
  Company Number: US-BRISTOL-MYERS SQUIBB COMPANY-BMS-2018-117642

PATIENT
  Sex: Female

DRUGS (1)
  1. ELIQUIS [Suspect]
     Active Substance: APIXABAN
     Indication: AORTIC STENOSIS
     Dosage: UNK
     Route: 065
     Dates: start: 2018

REACTIONS (3)
  - Gastrointestinal disorder [Unknown]
  - Product use issue [Unknown]
  - Product use in unapproved indication [Unknown]
